FAERS Safety Report 17958311 (Version 2)
Quarter: 2020Q3

REPORT INFORMATION
  Report Type: Report from Study
  Country: US (occurrence: US)
  Receive Date: 20200629
  Receipt Date: 20200707
  Transmission Date: 20201103
  Serious: Yes (Hospitalization, Other)
  Sender: FDA-Public Use
  Company Number: US-BAUSCH-BL-2020-017963

PATIENT
  Age: 57 Year
  Sex: Female

DRUGS (8)
  1. XIFAXAN [Suspect]
     Active Substance: RIFAXIMIN
     Indication: HEPATIC ENCEPHALOPATHY
     Route: 048
     Dates: end: 2020
  2. SPIRONOLACTONE. [Concomitant]
     Active Substance: SPIRONOLACTONE
     Indication: PRODUCT USED FOR UNKNOWN INDICATION
     Route: 048
  3. LACTULOSE. [Suspect]
     Active Substance: LACTULOSE
     Indication: HEPATIC ENCEPHALOPATHY
     Dosage: 10 GRAM/15 ML  AS NEEDED
     Route: 048
  4. FOLIC ACID. [Concomitant]
     Active Substance: FOLIC ACID
     Indication: PRODUCT USED FOR UNKNOWN INDICATION
     Route: 048
  5. XIFAXAN [Suspect]
     Active Substance: RIFAXIMIN
     Dosage: 60 TABLETS FOR 30 WITH 11 REFILLS
     Route: 048
     Dates: start: 20200618
  6. THIAMINE HCL [Concomitant]
     Active Substance: THIAMINE HYDROCHLORIDE
     Indication: PRODUCT USED FOR UNKNOWN INDICATION
     Route: 048
  7. PANTOPRAZOLE [Concomitant]
     Active Substance: PANTOPRAZOLE
     Indication: PRODUCT USED FOR UNKNOWN INDICATION
     Route: 048
  8. LASIX [Concomitant]
     Active Substance: FUROSEMIDE
     Indication: PRODUCT USED FOR UNKNOWN INDICATION
     Route: 048

REACTIONS (22)
  - Major depression [Not Recovered/Not Resolved]
  - Urinary incontinence [Unknown]
  - Temperature intolerance [Unknown]
  - Insomnia [Unknown]
  - Anxiety disorder [Not Recovered/Not Resolved]
  - Essential hypertension [Not Recovered/Not Resolved]
  - Inability to afford medication [Unknown]
  - Atrial fibrillation [Not Recovered/Not Resolved]
  - Stress [Unknown]
  - Alcohol withdrawal syndrome [Unknown]
  - Ill-defined disorder [Not Recovered/Not Resolved]
  - Nocturia [Unknown]
  - Mood swings [Unknown]
  - Cough [Unknown]
  - Cirrhosis alcoholic [Not Recovered/Not Resolved]
  - Portal hypertension [Not Recovered/Not Resolved]
  - Diarrhoea [Unknown]
  - Encephalopathy [Not Recovered/Not Resolved]
  - Alcoholism [Not Recovered/Not Resolved]
  - Chest pain [Unknown]
  - Personality change [Unknown]
  - Thrombocytopenia [Not Recovered/Not Resolved]

NARRATIVE: CASE EVENT DATE: 2020
